FAERS Safety Report 9463929 (Version 2)
Quarter: 2013Q3

REPORT INFORMATION
  Report Type: Spontaneous
  Country: JP (occurrence: JP)
  Receive Date: 20130819
  Receipt Date: 20130903
  Transmission Date: 20140515
  Serious: Yes (Other)
  Sender: FDA-Public Use
  Company Number: JP-JNJFOC-20130806885

PATIENT
  Age: 69 Year
  Sex: Male

DRUGS (4)
  1. TRAMCET [Suspect]
     Indication: BACK PAIN
     Dosage: 2 DOSES X 1 PER DAY
     Route: 048
  2. TRAMCET [Suspect]
     Indication: BACK PAIN
     Dosage: 2 DOSES X 2 PER DAY
     Route: 048
  3. TRAMCET [Suspect]
     Indication: BACK PAIN
     Dosage: 2 DOSES X 1 PER DAY
     Route: 048
     Dates: end: 20130824
  4. BI SIFROL [Concomitant]
     Indication: PARKINSON^S DISEASE
     Dosage: 1 PER 1 DAY / TABLET
     Route: 048

REACTIONS (1)
  - Delusion [Recovered/Resolved]
